FAERS Safety Report 9166186 (Version 1)
Quarter: 2013Q1

REPORT INFORMATION
  Report Type: Report from Study
  Country: US (occurrence: US)
  Receive Date: 20130315
  Receipt Date: 20130315
  Transmission Date: 20140127
  Serious: Yes (Other)
  Sender: FDA-Public Use
  Company Number: US-NAPPMUNDI-USA-2013-0099773

PATIENT
  Age: 53 Year
  Sex: Female

DRUGS (1)
  1. OXYCONTIN (NDA 22-272) [Suspect]
     Indication: BACK PAIN
     Dosage: 60 MG, TID
     Route: 048

REACTIONS (5)
  - Fall [Recovered/Resolved]
  - Rib fracture [Not Recovered/Not Resolved]
  - Jaw fracture [Not Recovered/Not Resolved]
  - Tongue biting [Recovered/Resolved]
  - Facial pain [Not Recovered/Not Resolved]
